FAERS Safety Report 8415682-7 (Version None)
Quarter: 2012Q2

REPORT INFORMATION
  Report Type: 
  Country: None (occurrence: None)
  Receive Date: 20120606
  Receipt Date: 20120604
  Transmission Date: 20120825
  Serious: Yes (Disabling, Other)
  Sender: FDA-Public Use
  Company Number: PHHY2012AU047918

PATIENT
  Sex: Female

DRUGS (4)
  1. LERCANIDIPINE [Concomitant]
     Dosage: 10 MG, HALF A TABLET DAILY
     Route: 048
     Dates: start: 20101217
  2. ZOLEDRONOC ACID [Suspect]
     Indication: OSTEOPOROSIS
     Dosage: 5 MG, UNK
     Route: 042
     Dates: start: 20110516
  3. ATACAND HCT [Concomitant]
     Dosage: 16/12.5MG DAILY
     Route: 048
     Dates: start: 20081016
  4. LIPITOR [Concomitant]
     Dosage: 40 MG, QD
     Route: 048
     Dates: start: 20110415

REACTIONS (5)
  - PAIN [None]
  - SPINAL OSTEOARTHRITIS [None]
  - PAIN IN EXTREMITY [None]
  - MYOSITIS [None]
  - GAIT DISTURBANCE [None]
